FAERS Safety Report 14270865 (Version 1)
Quarter: 2017Q4

REPORT INFORMATION
  Report Type: Spontaneous
  Country: JP (occurrence: JP)
  Receive Date: 20171211
  Receipt Date: 20171211
  Transmission Date: 20180321
  Serious: Yes (Life-Threatening, Hospitalization, Disabling, Other)
  Sender: FDA-Public Use
  Company Number: JP-OTSUKA-000775

PATIENT
  Age: 57 Year
  Sex: Male
  Weight: 55 kg

DRUGS (13)
  1. PANTOSIN [Concomitant]
     Active Substance: PANTETHINE
     Indication: PRODUCT USED FOR UNKNOWN INDICATION
     Dosage: 200 MG, TID
     Route: 048
     Dates: end: 20070720
  2. MAGNESIUM OXIDE. [Concomitant]
     Active Substance: MAGNESIUM OXIDE
     Indication: PRODUCT USED FOR UNKNOWN INDICATION
     Dosage: 0.33 MG, TID
     Route: 048
     Dates: end: 20070720
  3. ABILIFY [Suspect]
     Active Substance: ARIPIPRAZOLE
     Dosage: 12 MG, SINGLE
     Route: 048
     Dates: start: 20070620, end: 20070720
  4. RISPERDAL [Concomitant]
     Active Substance: RISPERIDONE
     Dosage: 3 MG, QD
     Route: 048
     Dates: start: 20070606, end: 20070620
  5. ROHYPNOL [Concomitant]
     Active Substance: FLUNITRAZEPAM
     Indication: PRODUCT USED FOR UNKNOWN INDICATION
     Dosage: 2 MG, QD
     Route: 048
     Dates: start: 20070606, end: 20070619
  6. LEUCON [Concomitant]
     Dosage: 10 MG, TID
     Route: 048
     Dates: start: 20060719, end: 20070227
  7. RISPERDAL [Concomitant]
     Active Substance: RISPERIDONE
     Indication: PRODUCT USED FOR UNKNOWN INDICATION
     Dosage: 6 MG, QD
     Route: 048
     Dates: end: 20070605
  8. LEUCON [Concomitant]
     Indication: PRODUCT USED FOR UNKNOWN INDICATION
     Dosage: 10 MG, BID
     Route: 048
     Dates: start: 20060322, end: 20060717
  9. LEUCON [Concomitant]
     Dosage: 20 MG, TID
     Route: 048
     Dates: start: 20070228, end: 20070717
  10. LEUCON [Concomitant]
     Dosage: 10 MG, TID
     Route: 048
     Dates: start: 20070718, end: 20070720
  11. ABILIFY [Suspect]
     Active Substance: ARIPIPRAZOLE
     Indication: SCHIZOPHRENIA
     Dosage: 6 MG, BID
     Route: 048
     Dates: start: 20070606, end: 20070619
  12. ROHYPNOL [Concomitant]
     Active Substance: FLUNITRAZEPAM
     Dosage: 1 MG, SINGLE
     Route: 048
     Dates: start: 20070620, end: 20070720
  13. TASMOLIN [Concomitant]
     Active Substance: BIPERIDEN
     Indication: PRODUCT USED FOR UNKNOWN INDICATION
     Dosage: 3 MG, QD
     Route: 048
     Dates: end: 20070620

REACTIONS (4)
  - Acute respiratory distress syndrome [Recovered/Resolved]
  - Stupor [Recovered/Resolved]
  - Respiratory failure [Recovered/Resolved with Sequelae]
  - Pneumonia aspiration [Recovered/Resolved with Sequelae]

NARRATIVE: CASE EVENT DATE: 20070720
